FAERS Safety Report 16548219 (Version 1)
Quarter: 2019Q3

REPORT INFORMATION
  Report Type: Spontaneous
  Country: US (occurrence: US)
  Receive Date: 20190709
  Receipt Date: 20190709
  Transmission Date: 20191004
  Serious: No
  Sender: FDA-Public Use
  Company Number: US-SA-2019SA183276

PATIENT
  Age: 31 Year
  Sex: Female

DRUGS (2)
  1. DUPIXENT [Suspect]
     Active Substance: DUPILUMAB
     Indication: ASTHMA
  2. DUPIXENT [Suspect]
     Active Substance: DUPILUMAB
     Indication: DERMATITIS ATOPIC
     Dosage: 300 MG, QOW
     Route: 058
     Dates: start: 201810

REACTIONS (9)
  - Asthma [Unknown]
  - Eczema [Unknown]
  - Dry skin [Unknown]
  - Dyspnoea [Unknown]
  - Chest discomfort [Unknown]
  - Pruritus [Unknown]
  - Skin exfoliation [Unknown]
  - Wheezing [Unknown]
  - Rash [Unknown]

NARRATIVE: CASE EVENT DATE: 201906
